FAERS Safety Report 7968092-0 (Version None)
Quarter: 2011Q4

REPORT INFORMATION
  Report Type: 
  Country: None (occurrence: None)
  Receive Date: 20111209
  Receipt Date: 20090128
  Transmission Date: 20120403
  Serious: Yes (Other)
  Sender: FDA-Public Use
  Company Number: PHHY2008JP30602

PATIENT
  Age: 79 Year
  Sex: Male

DRUGS (6)
  1. URINORM [Concomitant]
     Dosage: 50 MG, UNK
     Route: 048
  2. ZADITEN [Suspect]
     Route: 047
  3. OPALMON [Concomitant]
     Dosage: 15 MG, UNK
     Route: 048
  4. TIZANIDINE HCL [Suspect]
     Indication: MUSCULOSKELETAL STIFFNESS
  5. PLETAL [Suspect]
     Dosage: 200 MG, QD
     Route: 048
     Dates: end: 20081201
  6. PERINDOPRIL ERBUMINE [Concomitant]
     Dosage: 4 MG, UNK
     Route: 048
     Dates: end: 20081201

REACTIONS (1)
  - ELECTROCARDIOGRAM QT PROLONGED [None]
